FAERS Safety Report 5514640-X (Version None)
Quarter: 2007Q4

REPORT INFORMATION
  Report Type: 
  Country: None (occurrence: None)
  Receive Date: 20071113
  Receipt Date: 20071108
  Transmission Date: 20080405
  Serious: Yes (Other)
  Sender: FDA-Public Use
  Company Number: CA-ASTRAZENECA-2007UW26057

PATIENT
  Age: 86 Year
  Sex: Male

DRUGS (16)
  1. XYLOCAINE [Suspect]
     Dosage: 2%
     Route: 047
  2. ALPHAGAN [Suspect]
     Route: 047
  3. BACTIGRAS [Suspect]
     Route: 047
  4. CYCLOPENTOLATE HYDROCHLORIDE [Suspect]
     Route: 047
  5. FLURBIPROFEN [Suspect]
     Route: 047
  6. MIOCHOL [Suspect]
     Route: 047
  7. NEOSPORIN [Suspect]
     Route: 047
  8. PHENYLEPHRINE HYDROCHLORIDE 2.5% [Suspect]
     Route: 047
  9. PROVIODINE [Suspect]
     Route: 047
  10. TETRACAINE [Suspect]
     Route: 047
  11. TROPICAMIDE [Suspect]
     Route: 047
  12. ZYMAR [Suspect]
     Route: 047
  13. AMIODARONE HCL [Concomitant]
  14. ATENOLOL [Concomitant]
     Route: 048
  15. FOSINOPRIL SODIUM [Concomitant]
  16. LANOXIN [Concomitant]

REACTIONS (2)
  - EYE DISORDER [None]
  - INFLAMMATION [None]
